FAERS Safety Report 6071618-8 (Version None)
Quarter: 2009Q1

REPORT INFORMATION
  Report Type: 
  Country: None (occurrence: None)
  Receive Date: 20090210
  Receipt Date: 20090203
  Transmission Date: 20090719
  Serious: Yes (Hospitalization, Other)
  Sender: FDA-Public Use
  Company Number: DE-JNJFOC-20081202449

PATIENT
  Sex: Female
  Weight: 82 kg

DRUGS (5)
  1. RISPERDAL CONSTA [Suspect]
     Indication: SCHIZOAFFECTIVE DISORDER
     Route: 030
  2. RISPERDAL [Suspect]
     Indication: DRUG USE FOR UNKNOWN INDICATION
     Route: 048
  3. DOXEPIN HCL [Concomitant]
     Route: 048
  4. XIMOVAN [Concomitant]
     Route: 065
  5. VENLAFAXINE HCL [Concomitant]
     Route: 048

REACTIONS (3)
  - DELIRIUM [None]
  - DISORIENTATION [None]
  - LOSS OF CONSCIOUSNESS [None]
